FAERS Safety Report 14281496 (Version 2)
Quarter: 2017Q4

REPORT INFORMATION
  Report Type: Spontaneous
  Country: FR (occurrence: FR)
  Receive Date: 20171213
  Receipt Date: 20171228
  Transmission Date: 20180321
  Serious: Yes (Hospitalization)
  Sender: FDA-Public Use
  Company Number: FR-PFIZER INC-2017528182

PATIENT
  Age: 63 Year
  Sex: Male

DRUGS (2)
  1. PIRIBEDIL MESILATE [Suspect]
     Active Substance: PIRIBEDIL MESYLATE
     Dosage: 150 MG, QD
     Route: 048
  2. GABAPENTIN. [Suspect]
     Active Substance: GABAPENTIN
     Indication: TONGUE MOVEMENT DISTURBANCE
     Dosage: 800 MG, DAILY

REACTIONS (3)
  - Vomiting [Unknown]
  - Nausea [Unknown]
  - Drug ineffective for unapproved indication [Unknown]

NARRATIVE: CASE EVENT DATE: 2015
